FAERS Safety Report 8814566 (Version 2)
Quarter: 2012Q4

REPORT INFORMATION
  Report Type: Report from Study
  Country: KR (occurrence: KR)
  Receive Date: 20120928
  Receipt Date: 20121003
  Transmission Date: 20130627
  Serious: Yes (Death, Hospitalization)
  Sender: FDA-Public Use
  Company Number: KR-ASTELLAS-2012JP008791

PATIENT
  Age: 31 None
  Sex: Female

DRUGS (32)
  1. TACROLIMUS [Suspect]
     Indication: IMMUNOSUPPRESSANT DRUG THERAPY
     Dosage: 0.7 mg, Unknown/D
     Route: 042
     Dates: start: 20120821, end: 20120919
  2. HEPARIN SODIUM [Concomitant]
     Dosage: UNK
     Route: 042
     Dates: start: 20120815
  3. TRAMADOL [Concomitant]
     Dosage: UNK
     Route: 042
     Dates: start: 20120814
  4. L-ASPARTIC ACID [Concomitant]
     Dosage: UNK
     Route: 042
     Dates: start: 20120814
  5. METOCLOPRAMIDE [Concomitant]
     Dosage: UNK
     Route: 042
     Dates: start: 20120814, end: 20120926
  6. PALONOSETRON [Concomitant]
     Dosage: UNK
     Route: 042
     Dates: start: 20120815, end: 20120926
  7. BUSULFAN [Concomitant]
     Dosage: UNK
     Route: 042
     Dates: start: 20120815, end: 20120819
  8. SODIUM BICARBONATE [Concomitant]
     Dosage: UNK
     Route: 061
     Dates: start: 20120814, end: 20120926
  9. VITAMIN K1 [Concomitant]
     Dosage: UNK
     Route: 042
     Dates: start: 20120815, end: 20120926
  10. FLUDARABINE [Concomitant]
     Dosage: UNK
     Route: 042
     Dates: start: 20120815, end: 20120926
  11. POTASSIUM CHLORIDE [Concomitant]
     Dosage: UNK
     Route: 042
     Dates: start: 20120815, end: 20120926
  12. FUROSEMIDE [Concomitant]
     Dosage: UNK
     Route: 042
     Dates: start: 20120815, end: 20120926
  13. MICAFUNGIN [Concomitant]
     Dosage: UNK
     Route: 042
     Dates: start: 20120815, end: 20120926
  14. DIPHENYLHYDANTOIN                  /00017401/ [Concomitant]
     Dosage: UNK
     Route: 048
     Dates: start: 20120815, end: 20120822
  15. CIPROFLOXACIN [Concomitant]
     Dosage: UNK
     Route: 048
     Dates: start: 20120815, end: 20120830
  16. LORAZEPAM [Concomitant]
     Dosage: UNK
     Route: 042
     Dates: start: 20120816, end: 20120926
  17. IMMUNOGLOBULIN G HUMAN [Concomitant]
     Dosage: UNK
     Route: 042
     Dates: start: 20120822
  18. MANNITOL [Concomitant]
     Dosage: UNK
     Route: 042
     Dates: start: 20120822, end: 20120823
  19. HYDROCORTISONE [Concomitant]
     Dosage: UNK
     Route: 042
     Dates: start: 20120822, end: 20120823
  20. ACYCLOVIR                          /00587301/ [Concomitant]
     Dosage: UNK
     Route: 042
     Dates: start: 20120824, end: 20120913
  21. FILGRASTIM [Concomitant]
     Dosage: UNK
     Route: 042
     Dates: start: 20120825, end: 20120903
  22. MAGNESIUM [Concomitant]
     Dosage: UNK
     Route: 042
     Dates: start: 20120825, end: 20120826
  23. SILYMARIN [Concomitant]
     Dosage: UNK
     Route: 048
     Dates: start: 20120820, end: 20120829
  24. URSODEOXYCHOLIC ACID [Concomitant]
     Dosage: UNK
     Route: 048
     Dates: start: 20120820, end: 20120829
  25. ONDANSETRON [Concomitant]
     Dosage: UNK
     Route: 042
     Dates: start: 20120822, end: 20120909
  26. METRONIDAZOLE [Concomitant]
     Dosage: UNK
     Route: 042
     Dates: start: 20120824, end: 20120926
  27. TEICOPLANIN [Concomitant]
     Dosage: UNK
     Route: 042
     Dates: start: 20120830, end: 20120926
  28. CEFEPIM [Concomitant]
     Dosage: UNK
     Route: 042
     Dates: start: 20120830, end: 20120910
  29. ITRACONAZOLE [Concomitant]
     Dosage: UNK
     Route: 042
     Dates: start: 20120830, end: 20120926
  30. AMINO ACIDS NOS [Concomitant]
     Dosage: UNK
     Route: 042
     Dates: start: 20120919, end: 20120926
  31. ANTITHROMBIN III [Concomitant]
     Dosage: UNK
     Route: 042
     Dates: start: 20120919, end: 20120926
  32. ALPROSTADIL [Concomitant]
     Dosage: UNK
     Route: 042
     Dates: start: 20120913, end: 20120926

REACTIONS (4)
  - Multi-organ failure [Fatal]
  - Venoocclusive disease [Recovering/Resolving]
  - Thrombotic thrombocytopenic purpura [Fatal]
  - Haemorrhage [Fatal]
